FAERS Safety Report 8419122 (Version 4)
Quarter: 2012Q4

REPORT INFORMATION
  Report Type: 
  Country: JP (occurrence: JP)
  Receive Date: 20120221
  Receipt Date: 20120904
  Transmission Date: 20130627
  Serious: Yes (Life-Threatening, Hospitalization)
  Sender: FDA-Public Use
  Company Number: JP-BAYER-2012-011304

PATIENT
  Age: 68 Year
  Sex: Male
  Weight: 92 kg

DRUGS (14)
  1. NEXAVAR [Suspect]
     Indication: HEPATIC NEOPLASM MALIGNANT
     Dosage: 400 mg, QD
     Route: 048
     Dates: start: 20120107, end: 20120113
  2. LANSOPRAZOLE [Concomitant]
     Indication: DUODENAL ULCER
     Dosage: Daily dose 15 mg
     Route: 048
  3. ALLOPURINOL [Concomitant]
     Indication: HYPERURICAEMIA
     Dosage: Daily dose 200 mg
     Route: 048
  4. METOPROLOL TARTRATE [Concomitant]
     Indication: ANGINA PECTORIS
     Dosage: Daily dose 40 mg
     Route: 048
  5. SIMVASTATIN [Concomitant]
     Indication: HYPERLIPIDAEMIA
     Dosage: Daily dose 5 mg
     Route: 048
  6. GLIMEPIRIDE [Concomitant]
     Indication: DIABETES MELLITUS
     Dosage: Daily dose 1 mg
     Route: 048
  7. METFORMIN HYDROCHLORIDE [Concomitant]
     Indication: DIABETES MELLITUS
     Dosage: Daily dose 500 mg
     Route: 048
  8. CORTRIL [Concomitant]
     Indication: ADRENAL INSUFFICIENCY
     Dosage: Daily dose 25 mg
     Route: 048
  9. TEPRENONE [Concomitant]
     Indication: DUODENAL ULCER
     Dosage: Daily dose 150 mg
     Route: 048
  10. PURSENNID [Concomitant]
     Indication: CONSTIPATION
     Dosage: Daily dose 24 mg
     Route: 048
  11. EURODIN [Concomitant]
     Indication: INSOMNIA
     Dosage: 2 mg, QD
     Route: 048
  12. BAYASPIRIN [Concomitant]
     Indication: ANGINA PECTORIS
     Dosage: 100 mg, QD
     Route: 048
  13. ORAL ANTIDIABETICS [Concomitant]
     Indication: DIABETES MELLITUS
     Dosage: 25 mg, QD
     Route: 048
  14. MAGLAX [Concomitant]
     Indication: CONSTIPATION
     Dosage: Daily dose 1980 mg
     Route: 048

REACTIONS (2)
  - Angina pectoris [Recovering/Resolving]
  - Aspartate aminotransferase increased [Unknown]
